FAERS Safety Report 9948762 (Version 2)
Quarter: 2015Q4

REPORT INFORMATION
  Report Type: Report from Study
  Country: US (occurrence: US)
  Receive Date: 20140304
  Receipt Date: 20151118
  Transmission Date: 20160305
  Serious: Yes (Other)
  Sender: FDA-Public Use
  Company Number: US-ROCHE-1345066

PATIENT
  Sex: Female

DRUGS (8)
  1. POLYTRIM [Concomitant]
     Active Substance: POLYMYXIN B SULFATE\TRIMETHOPRIM SULFATE
     Dosage: OS
     Route: 065
  2. LISINOPRIL. [Concomitant]
     Active Substance: LISINOPRIL
  3. LUCENTIS [Suspect]
     Active Substance: RANIBIZUMAB
     Indication: RETINITIS HISTOPLASMA
     Route: 050
  4. AVASTIN [Suspect]
     Active Substance: BEVACIZUMAB
     Indication: RETINITIS HISTOPLASMA
     Route: 065
  5. MYDRIACYL [Concomitant]
     Active Substance: TROPICAMIDE
     Route: 065
  6. DETROL [Concomitant]
     Active Substance: TOLTERODINE TARTRATE
  7. METFORMIN [Concomitant]
     Active Substance: METFORMIN HYDROCHLORIDE
  8. LORATADINE. [Concomitant]
     Active Substance: LORATADINE

REACTIONS (5)
  - Retinal haemorrhage [Unknown]
  - Vision blurred [Unknown]
  - Visual acuity reduced [Unknown]
  - Off label use [Unknown]
  - Eye pruritus [Unknown]
